FAERS Safety Report 20784281 (Version 7)
Quarter: 2024Q3

REPORT INFORMATION
  Report Type: Report from Study
  Country: CA (occurrence: CA)
  Receive Date: 20220504
  Receipt Date: 20240706
  Transmission Date: 20241017
  Serious: No
  Sender: ROCHE
  Company Number: CA-ROCHE-2877072

PATIENT
  Age: 40 Year
  Sex: Female

DRUGS (11)
  1. OCREVUS [Suspect]
     Active Substance: OCRELIZUMAB
     Indication: Relapsing-remitting multiple sclerosis
     Dosage: 300 MG AT DAY 0 AND 14, THEN 600 MG EVERY 5 MONTH
     Route: 042
     Dates: start: 20210721
  2. HUMALOG [Concomitant]
     Active Substance: INSULIN LISPRO
  3. RAMIPRIL [Concomitant]
     Active Substance: RAMIPRIL
  4. AMANTADINE [Concomitant]
     Active Substance: AMANTADINE
  5. MODAFINIL [Concomitant]
     Active Substance: MODAFINIL
     Dosage: 1-2 TABLETS ONCE DAILY
  6. CRESTOR [Concomitant]
     Active Substance: ROSUVASTATIN CALCIUM
     Dosage: 20MG DAILY AT BEDTIME
  7. SYNTHROID [Concomitant]
     Active Substance: LEVOTHYROXINE SODIUM
  8. DULOXETINE [Concomitant]
     Active Substance: DULOXETINE
     Dosage: DAILY
  9. BACLOFEN [Concomitant]
     Active Substance: BACLOFEN
     Dosage: 10-30MG AT BEDTIME
  10. TYLENOL [Concomitant]
     Active Substance: ACETAMINOPHEN
  11. NAPROXEN [Concomitant]
     Active Substance: NAPROXEN

REACTIONS (4)
  - Hypertension [Recovered/Resolved]
  - Fatigue [Unknown]
  - COVID-19 [Recovered/Resolved]
  - Muscle twitching [Unknown]

NARRATIVE: CASE EVENT DATE: 20210721
